FAERS Safety Report 9843044 (Version 2)
Quarter: 2014Q1

REPORT INFORMATION
  Report Type: Report from Study
  Country: US (occurrence: US)
  Receive Date: 20140124
  Receipt Date: 20140303
  Transmission Date: 20141002
  Serious: Yes (Other)
  Sender: FDA-Public Use
  Company Number: US-US-EMD SERONO, INC.-7263955

PATIENT
  Sex: Female
  Weight: 63 kg

DRUGS (1)
  1. REBIF [Suspect]
     Indication: PRODUCT USED FOR UNKNOWN INDICATION
     Route: 058
     Dates: start: 20070215

REACTIONS (3)
  - Silent myocardial infarction [Recovered/Resolved]
  - Bundle branch block left [Not Recovered/Not Resolved]
  - Influenza like illness [Recovering/Resolving]
